FAERS Safety Report 18722737 (Version 5)
Quarter: 2021Q1

REPORT INFORMATION
  Report Type: Spontaneous
  Country: GR (occurrence: GR)
  Receive Date: 20210111
  Receipt Date: 20210201
  Transmission Date: 20210419
  Serious: Yes (Death)
  Sender: FDA-Public Use
  Company Number: GR-ROCHE-2746353

PATIENT
  Age: 72 Year
  Sex: Female

DRUGS (13)
  1. MABTHERA [Suspect]
     Active Substance: RITUXIMAB
     Indication: DIFFUSE LARGE B-CELL LYMPHOMA REFRACTORY
  2. MABTHERA [Suspect]
     Active Substance: RITUXIMAB
     Indication: LYMPHOMA
     Dosage: (700 MG) DAY 1 CYCLE 1, 500 MG + 100 MG UNTIL 23/DEC/2020
     Route: 042
     Dates: start: 20201223
  3. POLIVY [Suspect]
     Active Substance: POLATUZUMAB VEDOTIN-PIIQ
     Indication: DIFFUSE LARGE B-CELL LYMPHOMA REFRACTORY
  4. POLIVY [Suspect]
     Active Substance: POLATUZUMAB VEDOTIN-PIIQ
     Indication: LYMPHOMA
     Dosage: BW (120 MG) ON DAY 2 CYCLE 1, 140 MG UNTIL 24/DEC/2020
     Route: 042
     Dates: start: 20201224
  5. BENDAMUSTINE [Suspect]
     Active Substance: BENDAMUSTINE
     Indication: DIFFUSE LARGE B-CELL LYMPHOMA REFRACTORY
  6. MABTHERA [Suspect]
     Active Substance: RITUXIMAB
     Indication: METASTASES TO BONE
  7. TRIMETHOPRIM SULFAMETHOXAZOLE [Concomitant]
     Active Substance: SULFAMETHOXAZOLE\TRIMETHOPRIM
     Indication: PROPHYLAXIS
     Route: 048
     Dates: start: 20201223, end: 20210101
  8. POLIVY [Suspect]
     Active Substance: POLATUZUMAB VEDOTIN-PIIQ
     Indication: METASTASES TO BONE
  9. BENDAMUSTINE [Suspect]
     Active Substance: BENDAMUSTINE
     Indication: LYMPHOMA
     Dosage: ON DAY 2, DAY 3  CYCLE 1?SHE RECEIVED LAST DOSE UNTIL 25/DEC/2020.
     Route: 042
     Dates: start: 20201224
  10. BENDAMUSTINE [Suspect]
     Active Substance: BENDAMUSTINE
     Indication: METASTASES TO BONE
  11. ACICLOVIR [Concomitant]
     Active Substance: ACYCLOVIR
     Indication: PROPHYLAXIS
     Route: 048
     Dates: start: 20201223, end: 20210101
  12. OMEPRAZOL [Concomitant]
     Active Substance: OMEPRAZOLE
     Route: 042
  13. ONDANSETRON [Concomitant]
     Active Substance: ONDANSETRON
     Dosage: DAY 2, 3

REACTIONS (4)
  - Multiple organ dysfunction syndrome [Fatal]
  - Febrile neutropenia [Fatal]
  - Septic shock [Fatal]
  - Acute lymphocytic leukaemia [Fatal]

NARRATIVE: CASE EVENT DATE: 20201228
